FAERS Safety Report 9909597 (Version 1)
Quarter: 2014Q1

REPORT INFORMATION
  Report Type: Spontaneous
  Country: US (occurrence: None)
  Receive Date: 20140214
  Receipt Date: 20140214
  Transmission Date: 20141002
  Serious: No
  Sender: FDA-Public Use
  Company Number: None

PATIENT
  Age: 94 Year
  Sex: Female

DRUGS (4)
  1. OLANZAPINE [Suspect]
     Dosage: 10       PO
     Route: 048
  2. VALPROIC ACID [Concomitant]
  3. QUETIAPINE [Concomitant]
  4. SERTRALINE [Concomitant]

REACTIONS (1)
  - Drug ineffective [None]
